FAERS Safety Report 6187041-1 (Version None)
Quarter: 2009Q2

REPORT INFORMATION
  Report Type: 
  Country: None (occurrence: None)
  Receive Date: 20090508
  Receipt Date: 20090504
  Transmission Date: 20091009
  Serious: No
  Sender: FDA-Public Use
  Company Number: 2009004658

PATIENT
  Sex: Female
  Weight: 65.7716 kg

DRUGS (4)
  1. FENTORA [Suspect]
     Indication: RHEUMATOID ARTHRITIS
     Dosage: 200 MCG (200 MCG, 1 IN 1 AS REQUIRED) BU
  2. ADVAIR DISKUS 100/50 [Concomitant]
  3. XANAX [Concomitant]
  4. PREDNISONE TAB [Concomitant]

REACTIONS (2)
  - DRUG INEFFECTIVE [None]
  - DRUG PRESCRIBING ERROR [None]
